FAERS Safety Report 15408412 (Version 1)
Quarter: 2018Q3

REPORT INFORMATION
  Report Type: Spontaneous
  Country: IT (occurrence: IT)
  Receive Date: 20180920
  Receipt Date: 20180920
  Transmission Date: 20181010
  Serious: Yes (Hospitalization)
  Sender: FDA-Public Use
  Company Number: IT-GLAXOSMITHKLINE-IT2018167802

PATIENT
  Age: 3 Year
  Sex: Female

DRUGS (3)
  1. SOBREROL [Suspect]
     Active Substance: SOBREROL
     Indication: NASOPHARYNGITIS
     Dosage: UNK
     Route: 065
  2. SALBUTAMOL [Suspect]
     Active Substance: ALBUTEROL
     Indication: NASOPHARYNGITIS
     Dosage: UNK
     Route: 065
  3. MORNIFLUMATE [Suspect]
     Active Substance: MORNIFLUMATE
     Indication: NASOPHARYNGITIS
     Dosage: UNK
     Route: 065

REACTIONS (2)
  - Off label use [Unknown]
  - Vasculitis [Unknown]
